FAERS Safety Report 4299816-4 (Version None)
Quarter: 2004Q1

REPORT INFORMATION
  Report Type: 
  Country: None (occurrence: None)
  Receive Date: 20040219
  Receipt Date: 20020320
  Transmission Date: 20041129
  Serious: Yes (Disabling, Other)
  Sender: FDA-Public Use
  Company Number: WAES 0203USA02339

PATIENT
  Age: 57 Year
  Sex: Male
  Weight: 76 kg

DRUGS (18)
  1. LORCET 10/650 [Concomitant]
     Indication: PAIN IN EXTREMITY
  2. ASPIRIN [Concomitant]
     Dates: end: 19990910
  3. KEFLEX [Concomitant]
     Indication: CELLULITIS
     Dates: start: 19990801, end: 19990809
  4. BIAXIN [Concomitant]
     Indication: CELLULITIS
     Dates: start: 19990809, end: 19990818
  5. DECADRON PAK [Concomitant]
     Indication: PAIN IN EXTREMITY
     Dates: end: 20000127
  6. VASOTEC [Concomitant]
     Route: 048
     Dates: start: 20000210, end: 20000214
  7. VASOTEC [Concomitant]
     Route: 048
     Dates: start: 20000215, end: 20000407
  8. VASOTEC [Concomitant]
     Dates: start: 20000407
  9. LODINE XL [Concomitant]
     Indication: OEDEMA PERIPHERAL
     Dates: start: 19990809, end: 19990815
  10. HYDRODIURIL [Concomitant]
     Route: 048
     Dates: start: 20000215
  11. MOTRIN [Concomitant]
     Dates: end: 19990809
  12. PYRIDOXINE [Concomitant]
  13. VIOXX [Concomitant]
     Indication: PAIN IN EXTREMITY
  14. ZOCOR [Suspect]
     Indication: HYPERCHOLESTEROLAEMIA
     Route: 048
     Dates: start: 19990312, end: 20000216
  15. ZOCOR [Suspect]
     Indication: HYPERLIPIDAEMIA
     Route: 048
     Dates: start: 19990312, end: 20000216
  16. SODIUM FOLATE [Concomitant]
  17. ULTRAM [Concomitant]
  18. VITAMINS (UNSPECIFIED) [Concomitant]

REACTIONS (25)
  - AGITATION [None]
  - ANXIETY [None]
  - ASTHENIA [None]
  - BACK PAIN [None]
  - BLOOD PRESSURE ABNORMAL [None]
  - CELLULITIS [None]
  - DEMYELINATING POLYNEUROPATHY [None]
  - DEPRESSED MOOD [None]
  - DEPRESSIVE SYMPTOM [None]
  - DYSPHORIA [None]
  - FALL [None]
  - FATIGUE [None]
  - FEAR OF DISEASE [None]
  - FEELING ABNORMAL [None]
  - GASTROINTESTINAL DISORDER [None]
  - INSOMNIA [None]
  - IRRITABILITY [None]
  - MEMORY IMPAIRMENT [None]
  - MUSCLE CRAMP [None]
  - NERVOUS SYSTEM DISORDER [None]
  - PHLEBITIS SUPERFICIAL [None]
  - PHOBIC AVOIDANCE [None]
  - SEXUAL DYSFUNCTION [None]
  - TARSAL TUNNEL SYNDROME [None]
  - THINKING ABNORMAL [None]
